FAERS Safety Report 4365998-9 (Version None)
Quarter: 2004Q2

REPORT INFORMATION
  Report Type: 
  Country: None (occurrence: None)
  Receive Date: 20040526
  Receipt Date: 20040526
  Transmission Date: 20050107
  Serious: Yes (Life-Threatening, Hospitalization)
  Sender: FDA-Public Use
  Company Number: None

PATIENT
  Sex: Female
  Weight: 67.1324 kg

DRUGS (5)
  1. XELODA [Suspect]
     Indication: GLIOBLASTOMA MULTIFORME
     Dosage: 1000 MG BID ORAL
     Route: 048
     Dates: start: 20031103, end: 20040516
  2. XELODA [Suspect]
     Indication: GLIOBLASTOMA MULTIFORME
     Dosage: 150 MG BID ORAL
     Route: 048
     Dates: start: 20031103, end: 20040516
  3. KEPPRA [Concomitant]
  4. B6 [Concomitant]
  5. DECADRON [Concomitant]

REACTIONS (8)
  - BRAIN HERNIATION [None]
  - BRAIN OEDEMA [None]
  - CEREBRAL INFARCTION [None]
  - DEPRESSED LEVEL OF CONSCIOUSNESS [None]
  - DYSPNOEA [None]
  - HEADACHE [None]
  - NAUSEA [None]
  - VOMITING [None]
